FAERS Safety Report 25618553 (Version 1)
Quarter: 2025Q3

REPORT INFORMATION
  Report Type: Spontaneous
  Country: BR (occurrence: BR)
  Receive Date: 20250729
  Receipt Date: 20250729
  Transmission Date: 20251020
  Serious: Yes (Death, Hospitalization)
  Sender: AMGEN
  Company Number: BR-AMGEN-BRASP2025144625

PATIENT
  Age: 68 Year
  Sex: Female

DRUGS (2)
  1. XGEVA [Suspect]
     Active Substance: DENOSUMAB
     Indication: Metastases to bone
     Dosage: 120 MILLIGRAM, QMO, 1 AMPOULE
     Route: 058
     Dates: start: 202209, end: 202309
  2. SODIUM IODIDE I-131 [Concomitant]
     Active Substance: SODIUM IODIDE I-131

REACTIONS (5)
  - Death [Fatal]
  - Metastases to liver [Unknown]
  - Cholangitis [Unknown]
  - Biliary obstruction [Unknown]
  - Papillary thyroid cancer [Unknown]
